FAERS Safety Report 20163399 (Version 14)
Quarter: 2024Q3

REPORT INFORMATION
  Report Type: Spontaneous
  Country: CA (occurrence: CA)
  Receive Date: 20211209
  Receipt Date: 20240730
  Transmission Date: 20241016
  Serious: Yes (Other)
  Sender: CELLTRION
  Company Number: CA-CELLTRION INC.-2021CA011027

PATIENT

DRUGS (15)
  1. INFLECTRA [Suspect]
     Active Substance: INFLIXIMAB-DYYB
     Indication: Colitis ulcerative
     Dosage: 0, 2, 6 THEN EVERY 8 WEEKSWEEK 0 DOSE IN HOSPITAL
     Route: 042
     Dates: start: 20210623, end: 20220714
  2. INFLECTRA [Suspect]
     Active Substance: INFLIXIMAB-DYYB
     Indication: Crohn^s disease
     Dosage: 0, 2, 6 THEN EVERY 8 WEEKS
     Route: 042
     Dates: start: 20210713, end: 20210713
  3. INFLECTRA [Suspect]
     Active Substance: INFLIXIMAB-DYYB
     Dosage: 0, 2, 6 THEN EVERY 8 WEEKS
     Route: 042
     Dates: start: 20210809
  4. INFLECTRA [Suspect]
     Active Substance: INFLIXIMAB-DYYB
     Dosage: 0, 2, 6 THEN EVERY 8 WEEKS
     Route: 042
     Dates: start: 20211005
  5. INFLECTRA [Suspect]
     Active Substance: INFLIXIMAB-DYYB
     Dosage: 0, 2, 6 THEN EVERY 8 WEEKS
     Route: 042
     Dates: start: 20211129
  6. INFLECTRA [Suspect]
     Active Substance: INFLIXIMAB-DYYB
     Dosage: 0, 2, 6 THEN EVERY 8 WEEKS
     Route: 042
     Dates: start: 20220124
  7. INFLECTRA [Suspect]
     Active Substance: INFLIXIMAB-DYYB
     Dosage: 0, 2, 6 THEN EVERY 8 WEEKS
     Route: 042
     Dates: start: 20220324
  8. INFLECTRA [Suspect]
     Active Substance: INFLIXIMAB-DYYB
     Dosage: 0, 2, 6 THEN EVERY 8 WEEKS
     Route: 042
     Dates: start: 20220519
  9. INFLECTRA [Suspect]
     Active Substance: INFLIXIMAB-DYYB
     Dosage: 0, 2, 6 THEN EVERY 8 WEEKS
     Route: 042
     Dates: start: 20220714
  10. INFLECTRA [Suspect]
     Active Substance: INFLIXIMAB-DYYB
     Dosage: EVERY 8 WEEKS
     Route: 042
     Dates: start: 20220906
  11. INFLECTRA [Suspect]
     Active Substance: INFLIXIMAB-DYYB
     Dosage: EVERY 8 WEEKS
     Route: 042
     Dates: start: 20221028
  12. INFLECTRA [Suspect]
     Active Substance: INFLIXIMAB-DYYB
     Dosage: EVERY 8 WEEKS
     Route: 042
     Dates: start: 20221229
  13. INFLECTRA [Suspect]
     Active Substance: INFLIXIMAB-DYYB
     Dosage: EVERY 8 WEEKS
     Route: 042
     Dates: start: 20240523, end: 20240523
  14. METHOTREXATE [Concomitant]
     Active Substance: METHOTREXATE
     Dosage: 1 DF
  15. PREDNISONE [Concomitant]
     Active Substance: PREDNISONE
     Dosage: 510 MG

REACTIONS (12)
  - Haematochezia [Unknown]
  - Squamous cell carcinoma [Recovering/Resolving]
  - Off label use [Unknown]
  - Intentional product use issue [Unknown]
  - Off label use [Unknown]
  - Incorrect dose administered [Unknown]
  - Weight increased [Unknown]
  - Heart rate decreased [Unknown]
  - Blood pressure systolic increased [Unknown]
  - Blood pressure fluctuation [Not Recovered/Not Resolved]
  - C-reactive protein increased [Unknown]
  - Condition aggravated [Not Recovered/Not Resolved]

NARRATIVE: CASE EVENT DATE: 20210101
